FAERS Safety Report 4807754-0 (Version None)
Quarter: 2005Q4

REPORT INFORMATION
  Report Type: 
  Country: None (occurrence: None)
  Receive Date: 20051019
  Receipt Date: 20051007
  Transmission Date: 20060501
  Serious: Yes (Other)
  Sender: FDA-Public Use
  Company Number: 2005RR-00907

PATIENT
  Age: 64 Year
  Sex: Female

DRUGS (6)
  1. IBUPROFEN [Suspect]
     Dosage: 1200 MG, QD, ORAL
     Route: 048
  2. CLOZAPINE [Suspect]
     Dosage: ORAL
     Route: 048
     Dates: start: 20050720
  3. VALPROATE SODIUM [Suspect]
     Dosage: 500 MG, ORAL
     Route: 048
  4. PROCYCLIDINE HYDROCHLORIDE 2MG TAB [Concomitant]
  5. BECOTIDE [Concomitant]
  6. HYOSCINE HBR HYT [Concomitant]

REACTIONS (1)
  - NEUTROPHIL COUNT DECREASED [None]
